FAERS Safety Report 4943020-0 (Version None)
Quarter: 2006Q1

REPORT INFORMATION
  Report Type: 
  Country: None (occurrence: None)
  Receive Date: 20060314
  Receipt Date: 20040521
  Transmission Date: 20060701
  Serious: Yes (Other)
  Sender: FDA-Public Use
  Company Number: CA-SANOFI-SYNTHELABO-D01200401

PATIENT
  Age: 81 Year
  Sex: Male
  Weight: 84 kg

DRUGS (11)
  1. FONDAPARINUX [Suspect]
     Dosage: 2.5MG PER DAY
     Route: 058
     Dates: start: 20040513, end: 20040518
  2. ALDACTONE [Concomitant]
  3. ASPIRIN [Concomitant]
  4. ATENOLOL [Concomitant]
     Dosage: 50MG PER DAY
  5. CLOPIDOGREL [Concomitant]
  6. FENOFIBRATE [Concomitant]
  7. INSULIN [Concomitant]
  8. LASIX [Concomitant]
  9. LOSARTAN POTASSIUM [Concomitant]
  10. LOSEC [Concomitant]
  11. SIMVASTATIN [Concomitant]

REACTIONS (1)
  - CATHETER RELATED COMPLICATION [None]
